FAERS Safety Report 5597501-X (Version None)
Quarter: 2008Q1

REPORT INFORMATION
  Report Type: 
  Country: None (occurrence: None)
  Receive Date: 20080121
  Receipt Date: 20080115
  Transmission Date: 20080703
  Serious: Yes (Hospitalization)
  Sender: FDA-Public Use
  Company Number: BE-TEVA-166435ISR

PATIENT
  Sex: Male
  Weight: 76.2 kg

DRUGS (4)
  1. FLUOROURACIL [Suspect]
     Route: 042
     Dates: start: 20080107
  2. FOLINIC ACID [Suspect]
     Route: 042
     Dates: start: 20080107
  3. IRINOTECAN [Suspect]
     Route: 042
     Dates: start: 20080107
  4. MOVICOL [Concomitant]

REACTIONS (2)
  - BRONCHITIS [None]
  - DIARRHOEA [None]
